FAERS Safety Report 9320911 (Version 1)
Quarter: 2013Q2

REPORT INFORMATION
  Report Type: Spontaneous
  Country: US (occurrence: None)
  Receive Date: 20130529
  Receipt Date: 20130529
  Transmission Date: 20140414
  Serious: No
  Sender: FDA-Public Use
  Company Number: None

PATIENT
  Age: 64 Year
  Sex: Male
  Weight: 94.3 kg

DRUGS (1)
  1. FEBUXOSTAT [Suspect]
     Indication: GOUT
     Route: 048
     Dates: start: 20130510, end: 20130526

REACTIONS (3)
  - Rash [None]
  - Pruritus [None]
  - Urticaria [None]
